FAERS Safety Report 5055750-3 (Version None)
Quarter: 2006Q3

REPORT INFORMATION
  Report Type: 
  Country: None (occurrence: None)
  Receive Date: 20060714
  Receipt Date: 20060706
  Transmission Date: 20061208
  Serious: Yes (Hospitalization)
  Sender: FDA-Public Use
  Company Number: 2006075945

PATIENT
  Age: 69 Year
  Sex: Male
  Weight: 80.72 kg

DRUGS (5)
  1. ATORVASTATIN CALCIUM [Suspect]
     Indication: HYPERCHOLESTEROLAEMIA
     Dosage: 40 MG (40 MG, 1 IN 1 D)
     Dates: start: 20060406, end: 20060602
  2. ALL OTHER THERAPEUTIC PRODUCTS (ALL OTHER THERAPEUTIC PRODUCTS) [Suspect]
     Indication: HYPERCHOLESTEROLAEMIA
     Dosage: 10 MCG (1 IN 1 D)
     Dates: start: 20050505, end: 20060602
  3. SERTRALINE [Concomitant]
  4. ASPIRIN [Concomitant]
  5. COMBIVENT [Concomitant]

REACTIONS (9)
  - AORTIC VALVE INCOMPETENCE [None]
  - ELECTROCARDIOGRAM ST-T CHANGE [None]
  - LUNG HYPERINFLATION [None]
  - MITRAL VALVE INCOMPETENCE [None]
  - PALPITATIONS [None]
  - PLEURAL EFFUSION [None]
  - SINUS BRADYCARDIA [None]
  - TRICUSPID VALVE INCOMPETENCE [None]
  - TROPONIN I INCREASED [None]
